FAERS Safety Report 4646203-2 (Version None)
Quarter: 2005Q2

REPORT INFORMATION
  Report Type: 
  Country: None (occurrence: None)
  Receive Date: 20050422
  Receipt Date: 20050411
  Transmission Date: 20051028
  Serious: Yes (Hospitalization)
  Sender: FDA-Public Use
  Company Number: 05P-167-0291286-00

PATIENT
  Age: 35 Year
  Sex: Male

DRUGS (7)
  1. HUMIRA [Suspect]
     Indication: RHEUMATOID ARTHRITIS
     Dosage: 40 MG, 1 IN 2 WK, SUBCUTANEOUS
     Route: 058
     Dates: start: 20030901, end: 20040601
  2. METHOTREXATE [Concomitant]
  3. TRAMADOL HCL [Concomitant]
  4. DICLOFENAC SODIUM [Concomitant]
  5. OMEPRAZOLE [Concomitant]
  6. BACLOFEN [Concomitant]
  7. FOLIC ACID [Concomitant]

REACTIONS (2)
  - ARTHROPATHY [None]
  - MULTIPLE SCLEROSIS RELAPSE [None]
